FAERS Safety Report 6538840-5 (Version None)
Quarter: 2010Q1

REPORT INFORMATION
  Report Type: 
  Country: None (occurrence: None)
  Receive Date: 20100115
  Receipt Date: 20100106
  Transmission Date: 20100710
  Serious: No
  Sender: FDA-Public Use
  Company Number: US-B.I. PHARMACEUTICALS,INC./RIDGEFIELD-2009-BP-14696BP

PATIENT
  Sex: Male

DRUGS (5)
  1. ZANTAC 150 [Suspect]
     Indication: DYSPEPSIA
     Dosage: 300 MG
     Route: 048
     Dates: start: 20091210
  2. SALSALATE [Concomitant]
     Indication: ABDOMINAL PAIN
  3. TERAZOSIN HCL [Concomitant]
     Indication: PROSTATOMEGALY
  4. AMOXICILLIN [Concomitant]
     Indication: TOOTH INFECTION
  5. ASPIRIN [Concomitant]
     Indication: PROPHYLAXIS

REACTIONS (2)
  - BURNING SENSATION [None]
  - DYSGEUSIA [None]
